FAERS Safety Report 5785764-7 (Version None)
Quarter: 2008Q2

REPORT INFORMATION
  Report Type: 
  Country: None (occurrence: None)
  Receive Date: 20080620
  Receipt Date: 20080620
  Transmission Date: 20081010
  Serious: Yes (Other)
  Sender: FDA-Public Use
  Company Number: None

PATIENT
  Age: 47 Year
  Sex: Female
  Weight: 81.6475 kg

DRUGS (1)
  1. SEPTOCAINE [Suspect]

REACTIONS (4)
  - ANAESTHETIC COMPLICATION [None]
  - BLISTER [None]
  - OEDEMA PERIPHERAL [None]
  - SKIN ULCER [None]
